FAERS Safety Report 9687292 (Version 2)
Quarter: 2013Q4

REPORT INFORMATION
  Report Type: Spontaneous
  Country: NL (occurrence: NL)
  Receive Date: 20131114
  Receipt Date: 20131122
  Transmission Date: 20140711
  Serious: Yes (Death, Other)
  Sender: FDA-Public Use
  Company Number: NL-AMGEN-NLDSP2013078593

PATIENT
  Age: 81 Year
  Sex: Male

DRUGS (1)
  1. ARANESP [Suspect]
     Indication: PRODUCT USED FOR UNKNOWN INDICATION
     Dosage: 500 MUG, QWK
     Route: 058
     Dates: start: 20121017

REACTIONS (2)
  - Death [Fatal]
  - Terminal state [Unknown]
